FAERS Safety Report 9396753 (Version 1)
Quarter: 2013Q3

REPORT INFORMATION
  Report Type: Spontaneous
  Country: US (occurrence: US)
  Receive Date: 20130712
  Receipt Date: 20130712
  Transmission Date: 20140515
  Serious: No
  Sender: FDA-Public Use
  Company Number: US-009507513-1306USA013977

PATIENT
  Age: 18 Year
  Sex: Female

DRUGS (5)
  1. CELESTONE [Suspect]
     Indication: MATERNAL THERAPY TO ENHANCE FOETAL LUNG MATURITY
     Dosage: 2 DOSES
     Route: 048
  2. CISATRACURIUM BESYLATE [Concomitant]
     Route: 041
  3. PROPOFOL [Concomitant]
     Route: 041
  4. FENTANYL [Concomitant]
     Route: 041
  5. MIDAZOLAM [Concomitant]

REACTIONS (1)
  - Exposure during pregnancy [Recovered/Resolved]
